FAERS Safety Report 9782712 (Version 1)
Quarter: 2013Q4

REPORT INFORMATION
  Report Type: Spontaneous
  Country: IT (occurrence: IT)
  Receive Date: 20131226
  Receipt Date: 20131226
  Transmission Date: 20140711
  Serious: Yes (Other)
  Sender: FDA-Public Use
  Company Number: IT-ASTRAZENECA-2013SE92414

PATIENT
  Sex: Female

DRUGS (6)
  1. MERREM (MEROPENEM) [Suspect]
     Indication: KLEBSIELLA INFECTION
     Route: 042
     Dates: start: 20131120, end: 20131128
  2. MERREM (MEROPENEM) [Suspect]
     Indication: KLEBSIELLA INFECTION
     Dosage: 1000 MG POWDER FOR INJECTION SOLUTION
     Route: 042
     Dates: start: 20131120, end: 20131128
  3. MERREM (MEROPENEM) [Suspect]
     Indication: KLEBSIELLA INFECTION
     Route: 042
  4. COLIMICINA(COLISTIN ) [Suspect]
     Indication: KLEBSIELLA INFECTION
     Route: 042
     Dates: start: 20131120, end: 20131128
  5. COLIMICINA(COLISTIN ) [Suspect]
     Indication: KLEBSIELLA INFECTION
     Dosage: 1.000.000 U/4 ML POWDER AND SOLVENT FOR INJECTION SOLUTION
     Route: 042
     Dates: start: 20131120, end: 20131128
  6. COLIMICINA(COLISTIN ) [Suspect]
     Indication: KLEBSIELLA INFECTION
     Route: 042

REACTIONS (1)
  - Renal impairment [Not Recovered/Not Resolved]
